FAERS Safety Report 23364363 (Version 1)
Quarter: 2024Q1

REPORT INFORMATION
  Report Type: Spontaneous
  Country: PK (occurrence: None)
  Receive Date: 20240104
  Receipt Date: 20240104
  Transmission Date: 20240410
  Serious: Yes (Hospitalization)
  Sender: FDA-Public Use
  Company Number: PK-ROCHE-3484630

PATIENT
  Age: 61 Year
  Sex: Male

DRUGS (7)
  1. GAZYVA [Suspect]
     Active Substance: OBINUTUZUMAB
     Indication: Follicular lymphoma
     Dosage: INJECTION, CYCLE 2 ON 26/SEP/2023, CYCLE 17/SEP/2023
     Route: 042
     Dates: start: 20230905
  2. RITUXIMAB [Suspect]
     Active Substance: RITUXIMAB
     Indication: Follicular lymphoma
     Route: 065
  3. MABTHERA [Suspect]
     Active Substance: RITUXIMAB
     Indication: Follicular lymphoma
     Route: 065
  4. CYCLOPHOSPHAMIDE [Suspect]
     Active Substance: CYCLOPHOSPHAMIDE
     Indication: Follicular lymphoma
     Dosage: CYCLE 2 ON 26/SEP/2023, CYCLE 17/SEP/2023
     Route: 065
     Dates: start: 20230905
  5. DOXORUBICIN HYDROCHLORIDE [Suspect]
     Active Substance: DOXORUBICIN HYDROCHLORIDE
     Indication: Follicular lymphoma
     Dosage: CYCLE 2 ON 26/SEP/2023, CYCLE 17/SEP/2023
     Route: 065
     Dates: start: 20230905
  6. ONCOVIN [Suspect]
     Active Substance: VINCRISTINE SULFATE
     Indication: Follicular lymphoma
     Dosage: CYCLE 2 ON 26/SEP/2023, CYCLE 17/SEP/2023
     Route: 065
     Dates: start: 20230905
  7. PREDNISONE [Suspect]
     Active Substance: PREDNISONE
     Indication: Follicular lymphoma
     Dosage: CYCLE 2 ON 26/SEP/2023, CYCLE 17/SEP/2023
     Route: 065
     Dates: start: 20230905

REACTIONS (2)
  - Pyrexia [Recovered/Resolved]
  - Diarrhoea [Unknown]

NARRATIVE: CASE EVENT DATE: 20231027
